FAERS Safety Report 23281079 (Version 1)
Quarter: 2023Q4

REPORT INFORMATION
  Report Type: Spontaneous
  Country: US (occurrence: US)
  Receive Date: 20231211
  Receipt Date: 20231211
  Transmission Date: 20240109
  Serious: No
  Sender: FDA-Public Use
  Company Number: US-GLAXOSMITHKLINE-USCH2023060619

PATIENT

DRUGS (2)
  1. NICORETTE [Suspect]
     Active Substance: NICOTINE
     Indication: Taste disorder
     Dosage: UNK
  2. NICORETTE [Suspect]
     Active Substance: NICOTINE
     Indication: Anosmia

REACTIONS (5)
  - Dizziness [Unknown]
  - Hiccups [Unknown]
  - Palpitations [Unknown]
  - Heart rate decreased [Unknown]
  - Product use in unapproved indication [Unknown]
